FAERS Safety Report 4740915-8 (Version None)
Quarter: 2005Q3

REPORT INFORMATION
  Report Type: 
  Country: None (occurrence: None)
  Receive Date: 20050810
  Receipt Date: 20050126
  Transmission Date: 20060218
  Serious: Yes (Hospitalization)
  Sender: FDA-Public Use
  Company Number: JP-BRISTOL-MYERS SQUIBB COMPANY-12860672

PATIENT
  Age: 14 Year
  Sex: Female
  Weight: 70 kg

DRUGS (1)
  1. IFOMIDE [Suspect]
     Indication: BONE SARCOMA
     Route: 041
     Dates: start: 20010219, end: 20010223

REACTIONS (2)
  - ENCEPHALOPATHY [None]
  - METABOLIC ACIDOSIS [None]
